FAERS Safety Report 15114079 (Version 1)
Quarter: 2018Q3

REPORT INFORMATION
  Report Type: Spontaneous
  Country: US (occurrence: US)
  Receive Date: 20180706
  Receipt Date: 20180706
  Transmission Date: 20181010
  Serious: No
  Sender: FDA-Public Use
  Company Number: US-GLENMARK PHARMACEUTICALS-2018GMK035469

PATIENT

DRUGS (2)
  1. BETAMETHASONE DIPROPIONATE. [Suspect]
     Active Substance: BETAMETHASONE DIPROPIONATE
     Indication: ARTHROPOD BITE
     Dosage: UNK
     Route: 061
     Dates: start: 20180504
  2. SERTRALINE [Concomitant]
     Active Substance: SERTRALINE HYDROCHLORIDE
     Indication: ANXIETY
     Dosage: UNK
     Route: 065

REACTIONS (4)
  - Erythema [Recovering/Resolving]
  - Skin swelling [Recovering/Resolving]
  - Product use in unapproved indication [Unknown]
  - Dermatitis [Recovering/Resolving]

NARRATIVE: CASE EVENT DATE: 20180504
